FAERS Safety Report 4727497-1 (Version None)
Quarter: 2005Q3

REPORT INFORMATION
  Report Type: 
  Country: None (occurrence: None)
  Receive Date: 20050727
  Receipt Date: 20050727
  Transmission Date: 20060218
  Serious: Yes (Life-Threatening)
  Sender: FDA-Public Use
  Company Number: None

PATIENT
  Age: 66 Year
  Sex: Male
  Weight: 74 kg

DRUGS (2)
  1. SIMVASTATIN [Suspect]
     Indication: CORONARY ARTERY DISEASE
     Dosage: 80MG NIGHTLY   FOR MORE THAN 4 YRS
  2. SIMVASTATIN [Suspect]
     Indication: HYPERLIPIDAEMIA
     Dosage: 80MG NIGHTLY   FOR MORE THAN 4 YRS

REACTIONS (11)
  - ABDOMINAL PAIN [None]
  - BACTERIAL SEPSIS [None]
  - BLOOD CREATININE INCREASED [None]
  - CORONARY ARTERY STENOSIS [None]
  - MYALGIA [None]
  - PANCREATITIS NECROTISING [None]
  - POST PROCEDURAL COMPLICATION [None]
  - PROCEDURAL PAIN [None]
  - SMALL INTESTINAL OBSTRUCTION [None]
  - SMALL INTESTINE GANGRENE [None]
  - WHITE BLOOD CELL COUNT INCREASED [None]
